FAERS Safety Report 10614772 (Version 2)
Quarter: 2015Q2

REPORT INFORMATION
  Report Type: Report from Study
  Country: DE (occurrence: DE)
  Receive Date: 20141201
  Receipt Date: 20150514
  Transmission Date: 20150821
  Serious: Yes (Hospitalization)
  Sender: FDA-Public Use
  Company Number: DE-ROCHE-1497479

PATIENT
  Age: 71 Year
  Sex: Female

DRUGS (2)
  1. BENDAMUSTINE [Suspect]
     Active Substance: BENDAMUSTINE
     Indication: MALIGNANT LYMPHOID NEOPLASM
     Dosage: LAST DOSE PRIOR TO SAE 04/NOV/2014, PROTOCOL DEFINED DOSE.
     Route: 065
     Dates: start: 20140324
  2. RITUXIMAB [Suspect]
     Active Substance: RITUXIMAB
     Indication: MALIGNANT LYMPHOID NEOPLASM
     Dosage: LAST DOSE PRIOR TO SAE 04/NOV/2014, PROTOCOL DEFINED DOSE.
     Route: 058
     Dates: start: 20140324

REACTIONS (1)
  - Dehydration [Recovered/Resolved]

NARRATIVE: CASE EVENT DATE: 20141123
